FAERS Safety Report 25950446 (Version 1)
Quarter: 2025Q4

REPORT INFORMATION
  Report Type: Spontaneous
  Country: CN (occurrence: CN)
  Receive Date: 20251023
  Receipt Date: 20251023
  Transmission Date: 20260118
  Serious: Yes (Life-Threatening, Other)
  Sender: ABBVIE
  Company Number: CN-PFIZER INC-PV202500123134

PATIENT
  Age: 88 Year
  Sex: Male

DRUGS (9)
  1. AVIBACTAM SODIUM\CEFTAZIDIME [Suspect]
     Active Substance: AVIBACTAM SODIUM\CEFTAZIDIME
     Indication: Burkholderia cepacia complex infection
     Dosage: 2.5 G, 3 TIMES PER DAY
     Route: 042
     Dates: start: 2025
  2. MEROPENEM [Concomitant]
     Active Substance: MEROPENEM
     Indication: Evidence based treatment
     Dosage: 1 G, 2 TIMES PER DAY
     Route: 042
     Dates: start: 20250910
  3. PANTOPRAZOLE [Concomitant]
     Active Substance: PANTOPRAZOLE
     Indication: Acid base balance
     Dosage: 40 MG, 2 TIMES PER DAY
     Route: 041
     Dates: start: 2025
  4. POLYMYXIN [Concomitant]
     Active Substance: POLYMYXIN
     Indication: Anti-infective therapy
     Dosage: AEROSOL
     Dates: start: 20250925
  5. AVIBACTAM\AZTREONAM [Suspect]
     Active Substance: AVIBACTAM\AZTREONAM
     Indication: Anti-infective therapy
     Route: 042
     Dates: start: 20250925
  6. VANCOMYCIN [Concomitant]
     Active Substance: VANCOMYCIN
     Indication: Evidence based treatment
     Dosage: 0.5 G, 2 TIMES PER DAY
     Route: 041
     Dates: start: 20250910
  7. CASPOFUNGIN [Concomitant]
     Active Substance: CASPOFUNGIN
     Indication: Anti-infective therapy
     Dates: start: 20250925
  8. VANCOMYCIN [Concomitant]
     Active Substance: VANCOMYCIN
     Indication: Anti-infective therapy
     Dosage: NASAL FEEDING
     Dates: start: 20250925
  9. PIPERACILLIN AND TAZOBACTAM [Concomitant]
     Active Substance: PIPERACILLIN SODIUM\TAZOBACTAM SODIUM
     Indication: Anti-infective therapy
     Dates: start: 20250925

REACTIONS (3)
  - Haematochezia [Recovering/Resolving]
  - Melaena [Recovering/Resolving]
  - Gastrointestinal haemorrhage [Recovering/Resolving]

NARRATIVE: CASE EVENT DATE: 20250101
